FAERS Safety Report 7469093-1 (Version None)
Quarter: 2011Q2

REPORT INFORMATION
  Report Type: 
  Country: None (occurrence: None)
  Receive Date: 20110429
  Receipt Date: 20110415
  Transmission Date: 20111010
  Serious: Yes (Other)
  Sender: FDA-Public Use
  Company Number: JHP201100042

PATIENT
  Age: 65 Year
  Sex: Male

DRUGS (3)
  1. DANTRIUM [Suspect]
     Indication: NEUROLEPTIC MALIGNANT SYNDROME
     Dosage: 80 MG, DAILY, INTRAVENOUS
     Route: 042
  2. DEPAKENE [Suspect]
     Dosage: 400 MG, DAILY
  3. MYONAL (EPERISONE HYDROCHLORIDE) [Concomitant]

REACTIONS (1)
  - HYPOGLYCAEMIA [None]
